FAERS Safety Report 22304746 (Version 2)
Quarter: 2023Q2

REPORT INFORMATION
  Report Type: Spontaneous
  Country: CH (occurrence: CH)
  Receive Date: 20230510
  Receipt Date: 20230627
  Transmission Date: 20230722
  Serious: Yes (Death, Other)
  Sender: FDA-Public Use
  Company Number: CH-GILEAD-2023-0627175

PATIENT
  Sex: Male

DRUGS (2)
  1. TRODELVY [Suspect]
     Active Substance: SACITUZUMAB GOVITECAN-HZIY
     Indication: Bladder cancer
     Dosage: 600 MG
     Route: 042
     Dates: start: 20230127, end: 20230127
  2. TRODELVY [Suspect]
     Active Substance: SACITUZUMAB GOVITECAN-HZIY
     Indication: Metastasis

REACTIONS (1)
  - Disease progression [Fatal]
